FAERS Safety Report 20621077 (Version 1)
Quarter: 2022Q1

REPORT INFORMATION
  Report Type: Spontaneous
  Country: AU (occurrence: None)
  Receive Date: 20220322
  Receipt Date: 20220322
  Transmission Date: 20220423
  Serious: Yes (Death, Hospitalization, Other)
  Sender: FDA-Public Use
  Company Number: 2022A119537

PATIENT
  Age: 41 Year
  Sex: Male

DRUGS (2)
  1. OSIMERTINIB [Suspect]
     Active Substance: OSIMERTINIB
     Route: 048
  2. GEFITINIB [Suspect]
     Active Substance: GEFITINIB
     Route: 048

REACTIONS (4)
  - Cough [Fatal]
  - Dyspnoea [Fatal]
  - Disease progression [Unknown]
  - Drug resistance [Unknown]
